FAERS Safety Report 12330657 (Version 1)
Quarter: 2016Q2

REPORT INFORMATION
  Report Type: Spontaneous
  Country: US (occurrence: None)
  Receive Date: 20160503
  Receipt Date: 20160503
  Transmission Date: 20160815
  Serious: Yes (Life-Threatening)
  Sender: FDA-Public Use
  Company Number: None

PATIENT
  Age: 55 Year
  Sex: Male
  Weight: 72.6 kg

DRUGS (1)
  1. SUTENT [Suspect]
     Active Substance: SUNITINIB MALATE
     Route: 048

REACTIONS (1)
  - Cerebral haemorrhage [None]

NARRATIVE: CASE EVENT DATE: 20160328
